FAERS Safety Report 16379693 (Version 3)
Quarter: 2019Q4

REPORT INFORMATION
  Report Type: Spontaneous
  Country: BR (occurrence: BR)
  Receive Date: 20190531
  Receipt Date: 20191202
  Transmission Date: 20200122
  Serious: Yes (Other)
  Sender: FDA-Public Use
  Company Number: BR-GLAXOSMITHKLINE-BR2019GSK084295

PATIENT
  Sex: Female
  Weight: 60 kg

DRUGS (3)
  1. ZIDOVUDINE. [Concomitant]
     Active Substance: ZIDOVUDINE
  2. NUCALA [Suspect]
     Active Substance: MEPOLIZUMAB
     Indication: ASTHMA
     Dosage: 100 MG, UNK
     Dates: start: 20190227
  3. LAMIVUDINE. [Suspect]
     Active Substance: LAMIVUDINE

REACTIONS (13)
  - Productive cough [Unknown]
  - Nasopharyngitis [Unknown]
  - Malaise [Unknown]
  - Pyrexia [Unknown]
  - Tremor [Unknown]
  - Product availability issue [Unknown]
  - Pneumonia [Unknown]
  - Product dose omission [Unknown]
  - Sneezing [Unknown]
  - Inappropriate schedule of product administration [Unknown]
  - Dysphonia [Unknown]
  - Cough [Unknown]
  - Breath sounds abnormal [Unknown]
